FAERS Safety Report 4708397-X (Version None)
Quarter: 2005Q3

REPORT INFORMATION
  Report Type: 
  Country: None (occurrence: None)
  Receive Date: 20050707
  Receipt Date: 20050617
  Transmission Date: 20060218
  Serious: Yes (Life-Threatening, Hospitalization)
  Sender: FDA-Public Use
  Company Number: DE-ROCHE-408151

PATIENT
  Age: 40 Year
  Sex: Male
  Weight: 95 kg

DRUGS (14)
  1. PEG-INTERFERON ALFA 2A (RO 25-8310) [Suspect]
     Route: 058
     Dates: start: 20050218
  2. PEG-INTERFERON ALFA 2A (RO 25-8310) [Suspect]
     Route: 058
     Dates: start: 20050518, end: 20050611
  3. REBETOL [Suspect]
     Route: 048
     Dates: start: 20050218
  4. REBETOL [Suspect]
     Dosage: 2-1-2/DAY.
     Route: 048
     Dates: start: 20050518, end: 20050611
  5. AMANTADINE HCL [Concomitant]
     Route: 048
     Dates: start: 20050218, end: 20050611
  6. ACETAMINOPHEN [Concomitant]
     Route: 048
     Dates: start: 20050218, end: 20050611
  7. DELIX 5 [Concomitant]
     Dosage: ONE DOSE FORM IN THE MORNING.
  8. ASS 100 [Concomitant]
     Dosage: ONE DOSE FORM IN THE MORNING.
  9. BELOC-ZOK MITE [Concomitant]
     Dosage: REPORTED AS METOPROLOL 05. ONE DOSE FORM IN THE MORNING AND A HALF DOSE FORM IN THE EVENING.
  10. SORTIS [Concomitant]
     Dosage: REPORTED AS SORTIS 10.
  11. NEXIUM [Concomitant]
     Dosage: REPORTED AS NEXIUM 40. ONE DOSE FORM IN THE MORNING.
     Dates: start: 20050413, end: 20050422
  12. PANTOPRAZOLE SODIUM [Concomitant]
     Dosage: PANTOZOL 20. ONE DOSE FORM IN THE MORNING.
  13. VOLTAREN [Concomitant]
     Dosage: ONE DOSE FORM IN THE MORNING, ONE DOSE FORM IN THE EVENING. CAN BE REDUCED DEPENDING ON SYMPTOMS.
  14. DIFLUCAN [Concomitant]
     Dates: start: 20050413, end: 20050422

REACTIONS (5)
  - CHEST PAIN [None]
  - HAEMOGLOBIN DECREASED [None]
  - NON-HODGKIN'S LYMPHOMA [None]
  - OESOPHAGEAL CANDIDIASIS [None]
  - REFLUX OESOPHAGITIS [None]
